FAERS Safety Report 23488786 (Version 6)
Quarter: 2025Q3

REPORT INFORMATION
  Report Type: Report from Study
  Country: CN (occurrence: CN)
  Receive Date: 20240206
  Receipt Date: 20250910
  Transmission Date: 20251020
  Serious: Yes (Hospitalization, Other)
  Sender: ROCHE
  Company Number: CN-ROCHE-3502194

PATIENT
  Age: 56 Year
  Sex: Female
  Weight: 63 kg

DRUGS (39)
  1. POLATUZUMAB VEDOTIN [Suspect]
     Active Substance: POLATUZUMAB VEDOTIN
     Indication: Diffuse large B-cell lymphoma
     Dosage: MOST RECENT DATE OF POLATUZUMAB PRIOR TO DECREASED PLATELET COUNT ONSET WAS 18/DEC/2023 WAS 120MG IV
     Route: 042
     Dates: start: 20240109, end: 20240109
  2. POLATUZUMAB VEDOTIN [Suspect]
     Active Substance: POLATUZUMAB VEDOTIN
     Dosage: MOST RECENT DATE OF POLATUZUMAB PRIOR TO DECREASED PLATELET COUNT ONSET WAS 18/DEC/2023 WAS 120MG IV
     Route: 042
     Dates: start: 20231124, end: 20231124
  3. ZANUBRUTINIB [Suspect]
     Active Substance: ZANUBRUTINIB
     Indication: Diffuse large B-cell lymphoma
     Route: 048
  4. ZANUBRUTINIB [Suspect]
     Active Substance: ZANUBRUTINIB
     Route: 065
  5. GEMCITABINE [Suspect]
     Active Substance: GEMCITABINE
     Indication: Diffuse large B-cell lymphoma
     Route: 042
  6. GEMCITABINE [Suspect]
     Active Substance: GEMCITABINE
     Route: 042
     Dates: end: 20231126
  7. OXALIPLATIN [Suspect]
     Active Substance: OXALIPLATIN
     Indication: Diffuse large B-cell lymphoma
     Route: 042
  8. OXALIPLATIN [Suspect]
     Active Substance: OXALIPLATIN
     Route: 042
  9. Recombinant Human Granulocyte Colony Stimulating [Concomitant]
     Route: 058
     Dates: start: 20240226, end: 20240226
  10. Recombinant Human Granulocyte Colony Stimulating [Concomitant]
     Route: 058
     Dates: start: 20240223, end: 20240226
  11. ENTECAVIR [Concomitant]
     Active Substance: ENTECAVIR
     Route: 048
     Dates: start: 20220623
  12. Mecobalamine injection [Concomitant]
     Indication: Prophylaxis
     Route: 042
     Dates: start: 20240109, end: 20240110
  13. Ondansetron hydrochloride inj [Concomitant]
     Indication: Prophylaxis
     Route: 042
     Dates: start: 20240110, end: 20240110
  14. Promethazine hydrochloride inj [Concomitant]
     Indication: Prophylaxis
     Route: 030
     Dates: start: 20240109, end: 20240109
  15. DEXAMETHASONE SODIUM PHOSPHATE [Concomitant]
     Active Substance: DEXAMETHASONE SODIUM PHOSPHATE
     Indication: Prophylaxis
     Route: 042
     Dates: start: 20240109, end: 20240109
  16. DEXAMETHASONE SODIUM PHOSPHATE [Concomitant]
     Active Substance: DEXAMETHASONE SODIUM PHOSPHATE
     Route: 042
     Dates: start: 20240201, end: 20240201
  17. DEXAMETHASONE SODIUM PHOSPHATE [Concomitant]
     Active Substance: DEXAMETHASONE SODIUM PHOSPHATE
     Route: 002
     Dates: start: 20231229, end: 20240101
  18. Diclofenac sodium suppository [Concomitant]
     Indication: Prophylaxis
     Route: 050
     Dates: start: 20240201, end: 20240201
  19. Diclofenac sodium suppository [Concomitant]
     Route: 050
     Dates: start: 20240109, end: 20240109
  20. Pegylated recombinant human granulocyte stimulating factor injection [Concomitant]
     Route: 058
     Dates: start: 20240111, end: 20240111
  21. PROMETHAZINE [Concomitant]
     Active Substance: PROMETHAZINE HYDROCHLORIDE
     Route: 030
     Dates: start: 20240201, end: 20240201
  22. Recombinant Human Thrombopoietin Injection [Concomitant]
     Dosage: DOSE- 15000 U
     Route: 058
     Dates: start: 20231227, end: 20240107
  23. Reduced Glutathione for Injection [Concomitant]
     Route: 042
     Dates: start: 20231228, end: 20240101
  24. METHIONINE AND VITAMIN B1 [Concomitant]
     Route: 042
     Dates: start: 20231228, end: 20231231
  25. VITAMIN B12 [Concomitant]
     Active Substance: CYANOCOBALAMIN
     Route: 002
     Dates: start: 20231229
  26. LIDOCAINE HYDROCHLORIDE [Concomitant]
     Active Substance: LIDOCAINE HYDROCHLORIDE
     Route: 002
     Dates: start: 20231229, end: 20240101
  27. 5%Sodium Bicarbonate Injection [Concomitant]
     Route: 002
     Dates: end: 20240101
  28. Acetylcysteine Solution for Inhalation [Concomitant]
     Route: 055
     Dates: start: 20231230, end: 20231230
  29. Acetylcysteine Solution for Inhalation [Concomitant]
     Dosage: ROUTE- DISSOLVING
     Dates: start: 20231231, end: 20231231
  30. Acetylcysteine Solution for Inhalation [Concomitant]
     Route: 055
     Dates: start: 20240101, end: 20240101
  31. CEFOPERAZONE SODIUM\SULBACTAM SODIUM [Concomitant]
     Active Substance: CEFOPERAZONE SODIUM\SULBACTAM SODIUM
     Route: 042
     Dates: start: 20231231
  32. LACTULOSE [Concomitant]
     Active Substance: LACTULOSE
     Route: 048
     Dates: start: 20231229, end: 20231229
  33. SODIUM CHLORIDE [Concomitant]
     Active Substance: SODIUM CHLORIDE
  34. POTASSIUM CHLORIDE [Concomitant]
     Active Substance: POTASSIUM CHLORIDE
  35. VITAMIN C [Concomitant]
     Active Substance: ASCORBIC ACID
  36. ESTAZOLAM [Concomitant]
     Active Substance: ESTAZOLAM
  37. ESOMEPRAZOLE [Concomitant]
     Active Substance: ESOMEPRAZOLE
  38. METOCLOPRAMIDE DIHYDROCHLORIDE [Concomitant]
     Active Substance: METOCLOPRAMIDE DIHYDROCHLORIDE
  39. GRANULOCYTE COLONY-STIMULATING FACTOR NOS [Concomitant]
     Active Substance: GRANULOCYTE COLONY-STIMULATING FACTOR NOS

REACTIONS (6)
  - Platelet count decreased [Not Recovered/Not Resolved]
  - Leukopenia [Recovered/Resolved]
  - Neutrophil count decreased [Recovered/Resolved]
  - Lymphocyte count decreased [Recovered/Resolved]
  - Anaemia [Not Recovered/Not Resolved]
  - Hyperuricaemia [Recovered/Resolved]

NARRATIVE: CASE EVENT DATE: 20231128
